FAERS Safety Report 23050645 (Version 1)
Quarter: 2023Q4

REPORT INFORMATION
  Report Type: Spontaneous
  Country: US (occurrence: US)
  Receive Date: 20231010
  Receipt Date: 20231010
  Transmission Date: 20240109
  Serious: Yes (Other)
  Sender: FDA-Public Use
  Company Number: US-SUN PHARMACEUTICAL INDUSTRIES LTD-2023R1-411708

PATIENT
  Age: 78 Year
  Sex: Male

DRUGS (2)
  1. CLOBETASOL [Suspect]
     Active Substance: CLOBETASOL
     Indication: Granulomatous dermatitis
     Dosage: 0.05 PERCENT
     Route: 065
  2. TRIAMCINOLONE [Suspect]
     Active Substance: TRIAMCINOLONE
     Indication: Granulomatous dermatitis
     Dosage: 0.1 PERCENT
     Route: 065

REACTIONS (1)
  - Therapy non-responder [Unknown]
